FAERS Safety Report 10133667 (Version 3)
Quarter: 2014Q2

REPORT INFORMATION
  Report Type: Spontaneous
  Country: IT (occurrence: IT)
  Receive Date: 20140428
  Receipt Date: 20140508
  Transmission Date: 20141212
  Serious: Yes (Other)
  Sender: FDA-Public Use
  Company Number: IT-TEVA-467791ISR

PATIENT
  Age: 13 Year
  Sex: Female

DRUGS (1)
  1. AMOXICILLIN [Suspect]
     Indication: PYREXIA
     Dosage: 1 GRAM DAILY;
     Route: 048
     Dates: start: 20060325, end: 20060325

REACTIONS (2)
  - Expired product administered [Unknown]
  - Dermatitis allergic [Recovered/Resolved]
